FAERS Safety Report 6645420-X (Version None)
Quarter: 2010Q1

REPORT INFORMATION
  Report Type: 
  Country: None (occurrence: None)
  Receive Date: 20100322
  Receipt Date: 20100315
  Transmission Date: 20100710
  Serious: Yes (Other)
  Sender: FDA-Public Use
  Company Number: JP-BRISTOL-MYERS SQUIBB COMPANY-14935928

PATIENT
  Age: 34 Year
  Sex: Female

DRUGS (2)
  1. ABILIFY [Suspect]
     Indication: BIPOLAR DISORDER
     Route: 048
     Dates: start: 20090723, end: 20100107
  2. LIMAS [Concomitant]
     Dosage: TABS
     Dates: start: 20090903, end: 20100107

REACTIONS (2)
  - ABORTION [None]
  - PREGNANCY [None]
